FAERS Safety Report 9962159 (Version 1)
Quarter: 2014Q1

REPORT INFORMATION
  Report Type: Report from Study
  Country: US (occurrence: US)
  Receive Date: 20140305
  Receipt Date: 20140305
  Transmission Date: 20141002
  Serious: No
  Sender: FDA-Public Use
  Company Number: US-ABBVIE-13P-163-1114845-00

PATIENT
  Age: 54 Year
  Sex: Female

DRUGS (13)
  1. HUMIRA [Suspect]
     Indication: RHEUMATOID ARTHRITIS
     Dates: start: 20130603
  2. PLAQUENIL [Concomitant]
     Indication: PSORIASIS
     Dosage: ONE ONCE DAILY
  3. FOSAMAX [Concomitant]
     Indication: OSTEOPOROSIS
  4. BACLOFEN [Concomitant]
     Indication: MUSCLE TWITCHING
     Dosage: 10 MG TWICE DAILY
  5. BACLOFEN [Concomitant]
     Dosage: 20 MG ONCE AT BEDTIME
  6. KLONIPIN [Concomitant]
     Indication: MUSCLE TWITCHING
     Dosage: 1 MG TWICE DAILY
  7. CYMBALTA [Concomitant]
     Indication: NEUROPATHY PERIPHERAL
     Dosage: 60 MG ONCE DAILY
  8. LISINOPRIL [Concomitant]
     Indication: RENAL DISORDER
     Dosage: 5 MG ONCE DAILY
  9. MAGNESIUM OXIDE [Concomitant]
     Indication: BLOOD MAGNESIUM DECREASED
     Dosage: 400 MG TWICE DAILY
  10. METOFORMIN [Concomitant]
     Indication: TYPE 2 DIABETES MELLITUS
     Dosage: 500 MG TWICE DAILY
  11. OXYCODONE [Concomitant]
     Indication: BREAKTHROUGH PAIN
     Dosage: 5 MG THREE TIME DAILY
  12. OXYCONTIN [Concomitant]
     Indication: PAIN MANAGEMENT
  13. OXYCODONE [Concomitant]
     Indication: PRODUCT USED FOR UNKNOWN INDICATION

REACTIONS (2)
  - Muscle twitching [Not Recovered/Not Resolved]
  - Hypersensitivity [Not Recovered/Not Resolved]
